FAERS Safety Report 23915514 (Version 3)
Quarter: 2024Q2

REPORT INFORMATION
  Report Type: Spontaneous
  Country: US (occurrence: US)
  Receive Date: 20240529
  Receipt Date: 20240529
  Transmission Date: 20240716
  Serious: No
  Sender: FDA-Public Use
  Company Number: US-Coherus Biosciences, Inc.-2024-COH-US000297

PATIENT

DRUGS (6)
  1. UDENYCA [Suspect]
     Active Substance: PEGFILGRASTIM-CBQV
     Indication: Prophylaxis
     Dosage: 6 MG/0.6 ML
     Route: 058
  2. UDENYCA [Suspect]
     Active Substance: PEGFILGRASTIM-CBQV
     Dosage: 6 MG/0.6 ML
     Route: 058
     Dates: start: 20240314, end: 20240314
  3. UDENYCA [Suspect]
     Active Substance: PEGFILGRASTIM-CBQV
     Dosage: 6 MG/0.6 ML
     Route: 058
     Dates: start: 20240404, end: 20240404
  4. UDENYCA [Suspect]
     Active Substance: PEGFILGRASTIM-CBQV
     Dosage: 6 MG/0.6 ML
     Route: 058
     Dates: start: 20240425
  5. VINCRISTINE [Concomitant]
     Active Substance: VINCRISTINE
  6. CYTOXAN [Concomitant]
     Active Substance: CYCLOPHOSPHAMIDE

REACTIONS (1)
  - Device malfunction [Unknown]

NARRATIVE: CASE EVENT DATE: 20240426
